FAERS Safety Report 12402598 (Version 2)
Quarter: 2016Q2

REPORT INFORMATION
  Report Type: Spontaneous
  Country: US (occurrence: US)
  Receive Date: 20160525
  Receipt Date: 20160527
  Transmission Date: 20160815
  Serious: Yes (Hospitalization)
  Sender: FDA-Public Use
  Company Number: US-SA-2016SA060275

PATIENT
  Sex: Male

DRUGS (2)
  1. LANTUS [Suspect]
     Active Substance: INSULIN GLARGINE
     Route: 065
  2. SOLOSTAR [Concomitant]
     Active Substance: DEVICE

REACTIONS (6)
  - Confusional state [Unknown]
  - Visual impairment [Unknown]
  - Blood glucose decreased [Unknown]
  - Tremor [Unknown]
  - Drug dose omission [Unknown]
  - Blood glucose abnormal [Unknown]
